FAERS Safety Report 25223421 (Version 2)
Quarter: 2025Q2

REPORT INFORMATION
  Report Type: Report from Study
  Country: US (occurrence: US)
  Receive Date: 20250422
  Receipt Date: 20250505
  Transmission Date: 20250717
  Serious: Yes (Other)
  Sender: ABBVIE
  Company Number: US-ABBVIE-6240777

PATIENT
  Age: 64 Year
  Sex: Female

DRUGS (2)
  1. HUMIRA [Suspect]
     Active Substance: ADALIMUMAB
     Indication: Rheumatoid arthritis
     Dosage: CITRATE FREE
     Route: 058
     Dates: start: 20070323
  2. HUMIRA [Suspect]
     Active Substance: ADALIMUMAB
     Route: 058
     Dates: start: 2005

REACTIONS (7)
  - Tendon injury [Unknown]
  - Limb injury [Unknown]
  - Rheumatoid arthritis [Not Recovered/Not Resolved]
  - Nasopharyngitis [Unknown]
  - Joint range of motion decreased [Unknown]
  - Joint injury [Unknown]
  - Injection site pain [Recovered/Resolved]

NARRATIVE: CASE EVENT DATE: 20050101
